FAERS Safety Report 23254541 (Version 1)
Quarter: 2023Q4

REPORT INFORMATION
  Report Type: Spontaneous
  Country: US (occurrence: US)
  Receive Date: 20231202
  Receipt Date: 20231202
  Transmission Date: 20240110
  Serious: Yes (Other)
  Sender: FDA-Public Use
  Company Number: US-ELI_LILLY_AND_COMPANY-US202311013179

PATIENT
  Sex: Female

DRUGS (4)
  1. RETEVMO [Suspect]
     Active Substance: SELPERCATINIB
     Indication: Non-small cell lung cancer
     Dosage: 40 MG, UNKNOWN
     Route: 048
     Dates: start: 202208
  2. RETEVMO [Suspect]
     Active Substance: SELPERCATINIB
     Indication: Metastases to central nervous system
     Dosage: 80 MG, UNKNOWN
     Route: 048
     Dates: start: 202208
  3. KEPPRA [Suspect]
     Active Substance: LEVETIRACETAM
     Indication: Seizure
     Dosage: 500 MG, BID
     Route: 065
  4. KEPPRA [Suspect]
     Active Substance: LEVETIRACETAM
     Dosage: 1250 MG, BID
     Route: 065

REACTIONS (1)
  - Seizure [Not Recovered/Not Resolved]
